FAERS Safety Report 14536919 (Version 1)
Quarter: 2018Q1

REPORT INFORMATION
  Report Type: Spontaneous
  Country: BR (occurrence: BR)
  Receive Date: 20180215
  Receipt Date: 20180215
  Transmission Date: 20180509
  Serious: Yes (Death, Hospitalization)
  Sender: FDA-Public Use
  Company Number: BR-BAYER-2018-026234

PATIENT

DRUGS (3)
  1. ZOMETA [Concomitant]
     Active Substance: ZOLEDRONIC ACID
  2. ZOLADEX [Concomitant]
     Active Substance: GOSERELIN ACETATE
  3. XOFIGO [Suspect]
     Active Substance: RADIUM RA-223 DICHLORIDE
     Indication: PROSTATE CANCER

REACTIONS (5)
  - Death [Fatal]
  - Confusional state [None]
  - Sepsis [None]
  - Somnolence [None]
  - Loss of consciousness [None]
